FAERS Safety Report 4479053-0 (Version None)
Quarter: 2004Q4

REPORT INFORMATION
  Report Type: 
  Country: None (occurrence: None)
  Receive Date: 20040923
  Receipt Date: 20040708
  Transmission Date: 20050328
  Serious: No
  Sender: FDA-Public Use
  Company Number: 207708

PATIENT
  Age: 38 Year
  Sex: Female

DRUGS (3)
  1. AVASTIN [Suspect]
     Indication: DRUG USE FOR UNKNOWN INDICATION
     Dosage: INTRAVENOUS
     Route: 042
  2. FLUOROURACIL [Concomitant]
  3. LEUCOVORIN (LEUCOVORIN CALCIUM) [Concomitant]

REACTIONS (1)
  - BLOOD BILIRUBIN INCREASED [None]
